FAERS Safety Report 8256556-4 (Version None)
Quarter: 2012Q2

REPORT INFORMATION
  Report Type: 
  Country: None (occurrence: None)
  Receive Date: 20120403
  Receipt Date: 20120329
  Transmission Date: 20120825
  Serious: Yes (Hospitalization, Congenital Anomaly, Other)
  Sender: FDA-Public Use
  Company Number: US-PFIZER INC-2011105386

PATIENT
  Sex: Male
  Weight: 3 kg

DRUGS (5)
  1. ZOLOFT [Suspect]
     Indication: ANXIETY
     Dosage: UNK
     Route: 064
     Dates: start: 20070410
  2. FERROUS SULFATE [Concomitant]
     Dosage: UNK
     Route: 064
     Dates: start: 20070507
  3. ZOLOFT [Suspect]
     Indication: POSTPARTUM DEPRESSION
     Dosage: 50 MG, 1X/DAY (EVERY DAY BEFORE NOON)
     Route: 064
     Dates: start: 20051212, end: 20070201
  4. SERTRALINE HYDROCHLORIDE [Suspect]
     Dosage: 100 MG, UNK
     Route: 064
  5. MULTI-VITAMINS [Concomitant]
     Dosage: UNK
     Route: 064
     Dates: start: 20070401

REACTIONS (20)
  - TRICUSPID VALVE INCOMPETENCE [None]
  - PULMONARY VASCULAR DISORDER [None]
  - PATENT DUCTUS ARTERIOSUS [None]
  - NEONATAL RESPIRATORY DISTRESS SYNDROME [None]
  - VENTRICULAR SEPTAL DEFECT [None]
  - FALLOT'S TETRALOGY [None]
  - PNEUMOTHORAX [None]
  - FOETAL EXPOSURE DURING PREGNANCY [None]
  - PULMONARY ARTERY ATRESIA [None]
  - HYDRONEPHROSIS [None]
  - CARDIAC FAILURE CONGESTIVE [None]
  - TRANSPOSITION OF THE GREAT VESSELS [None]
  - TRICUSPID VALVE DISEASE [None]
  - RIGHT ATRIAL DILATATION [None]
  - JAUNDICE [None]
  - EXOSTOSIS [None]
  - CONGENITAL ARTERIAL MALFORMATION [None]
  - ATRIAL SEPTAL DEFECT [None]
  - VENTRICULAR HYPOPLASIA [None]
  - PNEUMONIA [None]
